FAERS Safety Report 4396992-X (Version None)
Quarter: 2004Q3

REPORT INFORMATION
  Report Type: 
  Country: None (occurrence: None)
  Receive Date: 20040713
  Receipt Date: 20040713
  Transmission Date: 20050211
  Serious: Yes (Other)
  Sender: FDA-Public Use
  Company Number: None

PATIENT
  Age: 33 Year
  Sex: Male
  Weight: 97.5234 kg

DRUGS (1)
  1. LEVAQUIN [Suspect]
     Indication: PNEUMONIA MYCOPLASMAL
     Dosage: 1 PILL DAY ORAL
     Route: 048
     Dates: start: 20040229, end: 20040309

REACTIONS (3)
  - DYSPHAGIA [None]
  - DYSPNOEA [None]
  - OROPHARYNGEAL SWELLING [None]
